FAERS Safety Report 19250782 (Version 1)
Quarter: 2021Q2

REPORT INFORMATION
  Report Type: Report from Study
  Country: DE (occurrence: DE)
  Receive Date: 20210513
  Receipt Date: 20210513
  Transmission Date: 20210717
  Serious: Yes (Hospitalization)
  Sender: FDA-Public Use
  Company Number: DE-ROCHE-2826143

PATIENT
  Age: 48 Year
  Sex: Female
  Weight: 77 kg

DRUGS (7)
  1. DIMETINDEN [Concomitant]
     Active Substance: DIMETHINDENE
     Indication: PROPHYLAXIS
     Route: 048
     Dates: start: 20210505, end: 20210505
  2. GRANISETRON [Concomitant]
     Active Substance: GRANISETRON
     Indication: PROPHYLAXIS
     Route: 048
     Dates: start: 20210505, end: 20210505
  3. COLECALCIFEROL [Concomitant]
     Active Substance: CHOLECALCIFEROL
     Indication: PROPHYLAXIS
     Dosage: DOSE? 1000I.E
     Route: 048
  4. AMITRIPTYLIN [Concomitant]
     Active Substance: AMITRIPTYLINE
     Route: 048
     Dates: start: 20210421
  5. DEXAMETHASONE. [Concomitant]
     Active Substance: DEXAMETHASONE
     Indication: PROPHYLAXIS
     Route: 042
     Dates: start: 20210505, end: 20210505
  6. BEVACIZUMAB. [Suspect]
     Active Substance: BEVACIZUMAB
     Indication: CERVIX CARCINOMA RECURRENT
     Dosage: DATE OF LAST ADMINISTRATION: 05/MAY/2021
     Route: 042
     Dates: start: 20210303
  7. PANTOPRAZOL [Concomitant]
     Active Substance: PANTOPRAZOLE SODIUM
     Indication: PROPHYLAXIS
     Route: 048

REACTIONS (1)
  - Extravasation [Recovered/Resolved]

NARRATIVE: CASE EVENT DATE: 20210505
